FAERS Safety Report 4893729-2 (Version None)
Quarter: 2006Q1

REPORT INFORMATION
  Report Type: 
  Country: None (occurrence: None)
  Receive Date: 20060127
  Receipt Date: 20060123
  Transmission Date: 20060701
  Serious: Yes (Hospitalization)
  Sender: FDA-Public Use
  Company Number: GB-GLAXOSMITHKLINE-B0407533A

PATIENT
  Age: 10 Year
  Sex: Male

DRUGS (2)
  1. VENTOLIN [Suspect]
     Indication: REVERSIBLE AIRWAYS OBSTRUCTION
     Dosage: 100MCG UNKNOWN
     Route: 055
     Dates: start: 20051223, end: 20051226
  2. NO CONCURRENT MEDICATION [Concomitant]

REACTIONS (5)
  - ANOREXIA [None]
  - BLISTER [None]
  - MOUTH ULCERATION [None]
  - PALLOR [None]
  - STEVENS-JOHNSON SYNDROME [None]
